FAERS Safety Report 8166553-5 (Version None)
Quarter: 2012Q1

REPORT INFORMATION
  Report Type: 
  Country: None (occurrence: None)
  Receive Date: 20120227
  Receipt Date: 20110819
  Transmission Date: 20120608
  Serious: No
  Sender: FDA-Public Use
  Company Number: US-BRISTOL-MYERS SQUIBB COMPANY-15986409

PATIENT
  Age: 60 Year
  Sex: Female
  Weight: 81 kg

DRUGS (6)
  1. NEULASTA [Concomitant]
  2. BENADRYL [Concomitant]
  3. LORAZEPAM [Concomitant]
  4. VICODIN [Concomitant]
  5. COMPAZINE [Concomitant]
  6. TAXOL [Suspect]
     Dates: start: 20110808

REACTIONS (4)
  - ERYTHEMA [None]
  - TENDERNESS [None]
  - FLUSHING [None]
  - PRURITUS [None]
